FAERS Safety Report 7508243-5 (Version None)
Quarter: 2011Q2

REPORT INFORMATION
  Report Type: 
  Country: None (occurrence: None)
  Receive Date: 20110421
  Receipt Date: 20110414
  Transmission Date: 20111010
  Serious: Yes (Other)
  Sender: FDA-Public Use
  Company Number: ALL1-2010-06017

PATIENT
  Age: 61 Year
  Sex: Male
  Weight: 88.4 kg

DRUGS (15)
  1. WELCHOL [Concomitant]
  2. FISH OIL (FISH OIL) [Concomitant]
  3. CLINDAMYCIN [Concomitant]
  4. XANAX [Concomitant]
  5. CRESTOR [Concomitant]
  6. CLOBETASOL (CLOBETASOL) [Concomitant]
  7. VYVANSE [Suspect]
     Indication: ATTENTION DEFICIT/HYPERACTIVITY DISORDER
     Dates: start: 20100601, end: 20100620
  8. EFFEXOR XR [Concomitant]
  9. WELLBUTRIN [Concomitant]
  10. NEXIUM [Concomitant]
  11. RITALIN [Concomitant]
  12. AMBIEN [Concomitant]
  13. ASPIRIN [Concomitant]
  14. AVALIDE [Concomitant]
  15. CONCERTA [Concomitant]

REACTIONS (1)
  - ANGER [None]
